FAERS Safety Report 14894461 (Version 4)
Quarter: 2022Q2

REPORT INFORMATION
  Report Type: Report from Study
  Country: US (occurrence: None)
  Receive Date: 20180515
  Receipt Date: 20220421
  Transmission Date: 20220721
  Serious: Yes (Hospitalization, Other)
  Sender: FDA-Public Use
  Company Number: US-ROCHE-2121693

PATIENT
  Age: 49 Year
  Sex: Male
  Weight: 96.4 kg

DRUGS (13)
  1. VENETOCLAX [Suspect]
     Active Substance: VENETOCLAX
     Indication: Diffuse large B-cell lymphoma
     Dosage: AS PER PROTOCOL: VENETOCLAX WILL BE ADMINISTERED ORALLY ON DAYS 3-12 IN CYCLE 1, AND DAYS 1-10 WITH
     Route: 048
     Dates: start: 20180202
  2. RITUXIMAB [Suspect]
     Active Substance: RITUXIMAB
     Indication: Diffuse large B-cell lymphoma
     Dosage: DATE OF MOST RECENT DOSE PRIOR TO EVENT ONSET ON 26/APR/2018 (CYCLE 5 DAY 1).
     Route: 042
     Dates: start: 20180202
  3. ETOPOSIDE [Suspect]
     Active Substance: ETOPOSIDE
     Indication: Diffuse large B-cell lymphoma
     Dosage: DATE OF MOST RECENT DOSE (50 MG/M2) PRIOR TO EVENT ONSET ON 26/APR/2018 (CYCLE 5 DAY 1).
     Route: 042
     Dates: start: 20180202
  4. VINCRISTINE SULFATE [Suspect]
     Active Substance: VINCRISTINE SULFATE
     Indication: Diffuse large B-cell lymphoma
     Dosage: DATE OF MOST RECENT DOSE (0.4 MG/M2) PRIOR TO EVENT ONSET ON 26/APR/2018 (CYCLE 5 DAY 1).
     Route: 042
     Dates: start: 20180202
  5. CYCLOPHOSPHAMIDE [Suspect]
     Active Substance: CYCLOPHOSPHAMIDE
     Indication: Diffuse large B-cell lymphoma
     Dosage: DATE OF MOST RECENT DOSE (750 MG/M2) PRIOR TO EVENT ONSET ON 26/APR/2018 (CYCLE 5 DAY 1).
     Route: 042
     Dates: start: 20180202
  6. PREDNISONE [Suspect]
     Active Substance: PREDNISONE
     Indication: Diffuse large B-cell lymphoma
     Dosage: DATE OF MOST RECENT DOSE (60 MG/M2) PRIOR TO EVENT ONSET ON 26/APR/2018 (CYCLE 5 DAY 1).
     Route: 048
     Dates: start: 20180202
  7. DOXORUBICIN HYDROCHLORIDE [Suspect]
     Active Substance: DOXORUBICIN HYDROCHLORIDE
     Indication: Diffuse large B-cell lymphoma
     Dosage: DATE OF MOST RECENT DOSE (10 MG/M2) PRIOR TO EVENT ONSET ON 26/APR/2018 (CYCLE 5 DAY 1).
     Route: 042
     Dates: start: 20180202
  8. ONDANSETRON [Concomitant]
     Active Substance: ONDANSETRON
     Dosage: ORALLY DISPERSIBLE TABLET
     Route: 048
  9. PROCHLORPERAZINE [Concomitant]
     Active Substance: PROCHLORPERAZINE
     Route: 042
  10. GASTROGRAFIN [Concomitant]
     Active Substance: DIATRIZOATE MEGLUMINE\DIATRIZOATE SODIUM
     Route: 048
  11. SODIUM CHLORIDE [Concomitant]
     Active Substance: SODIUM CHLORIDE
     Route: 042
  12. METHOTREXATE [Concomitant]
     Active Substance: METHOTREXATE
  13. NEULASTA [Concomitant]
     Active Substance: PEGFILGRASTIM
     Dates: start: 20180501

REACTIONS (5)
  - Small intestinal obstruction [Recovered/Resolved]
  - Febrile neutropenia [Unknown]
  - Neutrophil count decreased [Recovered/Resolved]
  - Platelet count decreased [Recovered/Resolved]
  - White blood cell count decreased [Recovered/Resolved]

NARRATIVE: CASE EVENT DATE: 20180213
